FAERS Safety Report 19867158 (Version 1)
Quarter: 2021Q3

REPORT INFORMATION
  Report Type: Spontaneous
  Country: US (occurrence: US)
  Receive Date: 20210921
  Receipt Date: 20210921
  Transmission Date: 20211014
  Serious: No
  Sender: FDA-Public Use
  Company Number: US-BRAINTREE LABORATORIES, INC.-2021BTE00018

PATIENT
  Age: 69 Year
  Sex: Female
  Weight: 47.17 kg

DRUGS (3)
  1. LEVOTHYROXINE. [Concomitant]
     Active Substance: LEVOTHYROXINE
     Dosage: 50 ?G
  2. LORAZEPAM. [Concomitant]
     Active Substance: LORAZEPAM
     Dosage: 1 TABLETS
  3. SUPREP BOWEL PREP [Suspect]
     Active Substance: MAGNESIUM SULFATE\POTASSIUM SULFATE\SODIUM SULFATE
     Indication: COLONOSCOPY
     Dosage: 2 X 6 OZ. BOTTLE, 1X
     Route: 048
     Dates: start: 20210107, end: 20210108

REACTIONS (1)
  - Abdominal pain [Recovered/Resolved]

NARRATIVE: CASE EVENT DATE: 20210107
